FAERS Safety Report 15425047 (Version 1)
Quarter: 2018Q4

REPORT INFORMATION
  Report Type: Spontaneous
  Country: US (occurrence: US)
  Receive Date: 20180925
  Receipt Date: 20180925
  Transmission Date: 20190204
  Serious: No
  Sender: FDA-Public Use
  Company Number: US-THERAPEUTICSMD-2018TMD00064

PATIENT
  Sex: Female
  Weight: 56.24 kg

DRUGS (7)
  1. VITAMIN D3 [Concomitant]
     Active Substance: CHOLECALCIFEROL
     Dosage: 1000 IU, 1X/DAY
  2. PEPCID AC [Concomitant]
     Active Substance: FAMOTIDINE
     Dosage: UNK, 1X/DAY
  3. RELIZEN [Concomitant]
     Dosage: 2 TABLETS, 1X/DAY
  4. CLARITIN-D 24 HR [Concomitant]
     Dosage: UNK, 1X/DAY
  5. CULTURELLE [Concomitant]
     Active Substance: LACTOBACILLUS RHAMNOSUS
     Dosage: UNK, 1X/DAY
  6. IMVEXXY [Suspect]
     Active Substance: ESTRADIOL
     Indication: VAGINAL DISORDER
     Dosage: 10 MCG, 1X/DAY AT BEDTIME
     Route: 067
     Dates: start: 20180722, end: 20180730
  7. MAGNESIUM [Concomitant]
     Active Substance: MAGNESIUM
     Dosage: 250 MG, EVERY 72 HOURS

REACTIONS (3)
  - Vulvovaginal pruritus [Recovering/Resolving]
  - Urinary tract infection [Unknown]
  - Vulvovaginal burning sensation [Recovering/Resolving]

NARRATIVE: CASE EVENT DATE: 20180729
